FAERS Safety Report 4536640-9 (Version None)
Quarter: 2004Q4

REPORT INFORMATION
  Report Type: 
  Country: None (occurrence: None)
  Receive Date: 20041222
  Receipt Date: 20041222
  Transmission Date: 20050328
  Serious: No
  Sender: FDA-Public Use
  Company Number: None

PATIENT
  Age: 23 Year
  Sex: Female
  Weight: 55.3388 kg

DRUGS (2)
  1. EFFEXOR XR [Suspect]
     Indication: ANXIETY
     Dosage: 1 PILL ONCE A DAY ORAL
     Route: 048
     Dates: start: 20040301, end: 20041221
  2. EFFEXOR XR [Suspect]
     Indication: MOOD SWINGS
     Dosage: 1 PILL ONCE A DAY ORAL
     Route: 048
     Dates: start: 20040301, end: 20041221

REACTIONS (5)
  - ACTIVITIES OF DAILY LIVING IMPAIRED [None]
  - CHILLS [None]
  - DIFFICULTY IN WALKING [None]
  - DIZZINESS [None]
  - HYPERHIDROSIS [None]
